FAERS Safety Report 6899059-1 (Version None)
Quarter: 2010Q3

REPORT INFORMATION
  Report Type: 
  Country: None (occurrence: None)
  Receive Date: 20100802
  Receipt Date: 20071231
  Transmission Date: 20110219
  Serious: Yes (Hospitalization, Other)
  Sender: FDA-Public Use
  Company Number: US-PFIZER INC-2007073311

PATIENT
  Age: 65 Year
  Sex: Female
  Weight: 139.3 kg

DRUGS (1)
  1. LYRICA [Suspect]
     Indication: LUMBAR RADICULOPATHY

REACTIONS (1)
  - RENAL FAILURE ACUTE [None]
